FAERS Safety Report 24800793 (Version 3)
Quarter: 2025Q3

REPORT INFORMATION
  Report Type: Spontaneous
  Country: CN (occurrence: CN)
  Receive Date: 20250102
  Receipt Date: 20250809
  Transmission Date: 20251021
  Serious: Yes (Hospitalization, Other)
  Sender: ALEXION PHARMACEUTICALS
  Company Number: CN-AstraZeneca-CH-00753581A

PATIENT
  Age: 63 Year
  Sex: Female

DRUGS (1)
  1. IRESSA [Suspect]
     Active Substance: GEFITINIB
     Indication: Lung neoplasm malignant
     Dosage: 1 DOSAGE FORM, QD
     Route: 065

REACTIONS (5)
  - Heart rate increased [Recovering/Resolving]
  - Mobility decreased [Unknown]
  - Myocarditis post infection [Unknown]
  - Pyrexia [Unknown]
  - Anaemia [Unknown]
